FAERS Safety Report 15981257 (Version 2)
Quarter: 2019Q2

REPORT INFORMATION
  Report Type: Spontaneous
  Country: DE (occurrence: DE)
  Receive Date: 20190219
  Receipt Date: 20190513
  Transmission Date: 20190711
  Serious: Yes (Hospitalization)
  Sender: FDA-Public Use
  Company Number: DE-OTSUKA-2019_004436

PATIENT
  Age: 38 Year
  Sex: Female
  Weight: 79 kg

DRUGS (4)
  1. RAMIPRIL. [Concomitant]
     Active Substance: RAMIPRIL
     Indication: ANGIOTENSIN CONVERTING ENZYME INCREASED
     Dosage: 5 MG, BID
     Route: 065
  2. JINARC [Suspect]
     Active Substance: TOLVAPTAN
     Indication: CHRONIC KIDNEY DISEASE
     Dosage: 45 MG, (IN THE MORNING)
     Route: 048
     Dates: start: 20190108, end: 20190131
  3. JINARC [Suspect]
     Active Substance: TOLVAPTAN
     Indication: CONGENITAL CYSTIC KIDNEY DISEASE
     Dosage: 15 MG, (IN THE EVENING)
     Route: 048
     Dates: start: 20190108, end: 20190131
  4. CORTISONE [Concomitant]
     Active Substance: CORTISONE\HYDROCORTISONE
     Indication: PRODUCT USED FOR UNKNOWN INDICATION
     Dosage: HIGHLY DOSED
     Route: 065

REACTIONS (8)
  - Pyrexia [Recovered/Resolved]
  - Inflammation [Unknown]
  - Angioedema [Recovered/Resolved]
  - Dilatation intrahepatic duct congenital [Unknown]
  - Hepatic enzyme increased [Unknown]
  - Metaplasia [Unknown]
  - Cholestasis [Unknown]
  - Biliary tract disorder [Unknown]

NARRATIVE: CASE EVENT DATE: 20190130
